FAERS Safety Report 4472142-6 (Version None)
Quarter: 2004Q4

REPORT INFORMATION
  Report Type: 
  Country: None (occurrence: None)
  Receive Date: 20041012
  Receipt Date: 20040705
  Transmission Date: 20050328
  Serious: Yes (Hospitalization)
  Sender: FDA-Public Use
  Company Number: FR-MERCK-0407FRA00009

PATIENT
  Age: 54 Year
  Sex: Female
  Weight: 48 kg

DRUGS (7)
  1. [THERAPY UNSPECIFIED] [Concomitant]
     Indication: RHINITIS
     Route: 065
  2. BUDESONIDE [Concomitant]
     Indication: RHINITIS
     Route: 065
  3. FLUTICASONE PROPIONATE AND SALMETEROL XINAFOATE [Concomitant]
     Indication: ASTHMA
     Route: 055
     Dates: start: 20030801, end: 20040401
  4. HEPATITIS B VIRUS VACCINE (UNSPECIFIED) [Concomitant]
     Route: 065
     Dates: start: 20031001
  5. INFLUENZA VIRUS VACCINE (UNSPECIFIED) [Concomitant]
     Route: 065
     Dates: start: 20031101
  6. SINGULAIR [Suspect]
     Indication: ASTHMA
     Route: 048
     Dates: start: 20030901, end: 20040528
  7. YELLOW FEVER VIRUS VACCINE [Concomitant]
     Route: 065
     Dates: start: 20031001

REACTIONS (8)
  - ALLERGIC GRANULOMATOUS ANGIITIS [None]
  - C-REACTIVE PROTEIN INCREASED [None]
  - DIARRHOEA [None]
  - GASTRITIS [None]
  - GENERAL PHYSICAL HEALTH DETERIORATION [None]
  - POLYNEUROPATHY [None]
  - SCIATICA [None]
  - WEIGHT DECREASED [None]
